FAERS Safety Report 20731776 (Version 1)
Quarter: 2022Q2

REPORT INFORMATION
  Report Type: Spontaneous
  Country: US (occurrence: US)
  Receive Date: 20220420
  Receipt Date: 20220420
  Transmission Date: 20220721
  Serious: No
  Sender: FDA-Public Use
  Company Number: US-BAUSCH-BL-2022-009087

PATIENT
  Age: 4 Year
  Sex: Female

DRUGS (1)
  1. MESTINON [Suspect]
     Active Substance: PYRIDOSTIGMINE BROMIDE
     Indication: Myasthenia gravis
     Route: 048

REACTIONS (4)
  - Drug hypersensitivity [Unknown]
  - Aggression [Unknown]
  - Emotional disorder [Unknown]
  - Fatigue [Unknown]
